FAERS Safety Report 4471752-X (Version None)
Quarter: 2004Q4

REPORT INFORMATION
  Report Type: 
  Country: None (occurrence: None)
  Receive Date: 20041006
  Receipt Date: 20040922
  Transmission Date: 20050328
  Serious: Yes (Hospitalization)
  Sender: FDA-Public Use
  Company Number: 2004228473AU

PATIENT
  Age: 70 Year
  Sex: Female

DRUGS (6)
  1. XALATAN [Suspect]
     Indication: OPEN ANGLE GLAUCOMA
     Dosage: 1 GTT, QD, OPHTHALMIC
     Route: 047
     Dates: start: 19981119, end: 20040609
  2. CARTIA XT [Concomitant]
  3. ZOCOR [Concomitant]
  4. KARVEA (IRBESARTAN) [Concomitant]
  5. TENOPT [Concomitant]
  6. AZOPT [Concomitant]

REACTIONS (2)
  - ARTERIAL BYPASS OPERATION [None]
  - VISUAL DISTURBANCE [None]
